FAERS Safety Report 9534751 (Version 2)
Quarter: 2013Q3

REPORT INFORMATION
  Report Type: Spontaneous
  Country: US (occurrence: US)
  Receive Date: 20130918
  Receipt Date: 20130918
  Transmission Date: 20140515
  Serious: No
  Sender: FDA-Public Use
  Company Number: US-PURDUE-USA-2011-0078339

PATIENT
  Sex: Female
  Weight: 97.96 kg

DRUGS (12)
  1. BUTRANS [Suspect]
     Indication: PAIN
     Dosage: 10 MCG, Q1H
     Route: 062
     Dates: start: 20111005, end: 20111008
  2. VICTOZA [Concomitant]
     Indication: PRODUCT USED FOR UNKNOWN INDICATION
     Dosage: 0.6 MG, DAILY
     Dates: start: 20111101
  3. HYDROXYCHLOROQUINE [Concomitant]
     Indication: PRODUCT USED FOR UNKNOWN INDICATION
     Dosage: 200 MG, BID
     Route: 048
     Dates: start: 20100707
  4. PROMETHAZINE [Concomitant]
     Indication: NAUSEA
     Dosage: 25 MG, Q6H PRN
     Route: 048
     Dates: start: 20100707
  5. GABAPENTIN [Concomitant]
     Indication: PRODUCT USED FOR UNKNOWN INDICATION
     Dosage: 300 MG, Q1H 3-4 TABLETS
     Route: 048
     Dates: start: 20100428
  6. SERTRALINE [Concomitant]
     Indication: PRODUCT USED FOR UNKNOWN INDICATION
     Dosage: 50 MG, QD PRN
     Route: 048
     Dates: start: 20100111
  7. CLONAZEPAM [Concomitant]
     Indication: MUSCLE SPASMS
     Dosage: 0.5 MG, 1/2 TABLET PRN
     Route: 048
     Dates: start: 20091016
  8. LOTENSIN HCT [Concomitant]
     Indication: PRODUCT USED FOR UNKNOWN INDICATION
     Dosage: 20 MG-12.5 MG 2 TABLETS QD
     Route: 048
     Dates: start: 20090901
  9. PHENERGAN                          /00033001/ [Concomitant]
     Indication: MIGRAINE
     Dosage: 25 MG, Q4- 6H PRN
     Route: 048
     Dates: start: 20090624
  10. CRESTOR [Concomitant]
     Indication: PRODUCT USED FOR UNKNOWN INDICATION
     Dosage: 10 MG, 1/2 TABLET QD
     Route: 048
  11. LIDOCAINE [Concomitant]
     Indication: PRODUCT USED FOR UNKNOWN INDICATION
     Dosage: 5% PRN
     Route: 061
     Dates: start: 20080220
  12. ATENOLOL [Concomitant]
     Indication: PRODUCT USED FOR UNKNOWN INDICATION
     Dosage: 50 MG, QD PRN
     Route: 048
     Dates: start: 20040326

REACTIONS (3)
  - Somnolence [Recovered/Resolved]
  - Headache [Recovered/Resolved]
  - Sedation [Unknown]
